FAERS Safety Report 21843550 (Version 1)
Quarter: 2023Q1

REPORT INFORMATION
  Report Type: Spontaneous
  Country: US (occurrence: US)
  Receive Date: 20230110
  Receipt Date: 20230110
  Transmission Date: 20230418
  Serious: Yes (Other)
  Sender: FDA-Public Use
  Company Number: US-PFIZER INC-202300009333

PATIENT
  Age: 35 Year
  Sex: Female

DRUGS (1)
  1. IBRANCE [Suspect]
     Active Substance: PALBOCICLIB
     Indication: Breast cancer female
     Dosage: ONE CAPSULE EVERY DAY FOR 21 DAYS AND THEN 7 DAYS OFF
     Route: 048
     Dates: start: 202110

REACTIONS (1)
  - Neutropenia [Recovered/Resolved]
